FAERS Safety Report 17981305 (Version 1)
Quarter: 2020Q3

REPORT INFORMATION
  Report Type: Spontaneous
  Country: GB (occurrence: GB)
  Receive Date: 20200705
  Receipt Date: 20200705
  Transmission Date: 20201103
  Serious: Yes (Life-Threatening, Hospitalization, Other)
  Sender: FDA-Public Use
  Company Number: NVSC2020GB180609

PATIENT
  Age: 26 Year
  Sex: Male
  Weight: 79.5 kg

DRUGS (9)
  1. PARACETAMOL [Concomitant]
     Active Substance: ACETAMINOPHEN
     Indication: PAIN
     Dosage: 1 G (4X/DAY AS NEEDED)
     Route: 065
     Dates: start: 20200424
  2. MORPHINE SULPHATE [Concomitant]
     Active Substance: MORPHINE SULFATE
     Indication: PAIN
     Dosage: UNK (10MG/5ML LIQUID, AS NEEDED)
     Route: 065
     Dates: start: 20200424
  3. SODIUM CHLORIDE. [Suspect]
     Active Substance: SODIUM CHLORIDE
     Indication: PRODUCT USED FOR UNKNOWN INDICATION
     Dosage: UNK
     Route: 065
  4. DIFFLAM [Concomitant]
     Active Substance: BENZYDAMINE HYDROCHLORIDE
     Indication: MUCOSAL INFLAMMATION
     Dosage: UNK (AS NEEDED)
     Route: 065
     Dates: start: 20200424
  5. METHOTREXATE SODIUM. [Suspect]
     Active Substance: METHOTREXATE SODIUM
     Indication: OSTEOSARCOMA
  6. ACETAZOLAMIDE. [Concomitant]
     Active Substance: ACETAZOLAMIDE
     Indication: PAPILLOEDEMA
     Dosage: UNK (BD DOSING)
     Route: 065
     Dates: start: 20200424
  7. METHOTREXATE SODIUM. [Suspect]
     Active Substance: METHOTREXATE SODIUM
     Indication: PRODUCT USED FOR UNKNOWN INDICATION
     Dosage: 21800 MG IN 1000 ML NACL 0.9%,EVERY 5 WEEKS
     Route: 065
     Dates: start: 20200421
  8. DOCUSATE SODIUM. [Concomitant]
     Active Substance: DOCUSATE SODIUM
     Indication: CONSTIPATION
     Dosage: UNK (AS NEEDED)
     Route: 065
     Dates: start: 20200424
  9. GELCLAIR [Concomitant]
     Indication: MUCOSAL INFLAMMATION
     Dosage: UNK (AS NEEDED)
     Route: 065
     Dates: start: 20200424

REACTIONS (5)
  - Intracranial pressure increased [Unknown]
  - Headache [Unknown]
  - Leukoencephalopathy [Not Recovered/Not Resolved]
  - Visual impairment [Unknown]
  - Intraocular pressure increased [Unknown]

NARRATIVE: CASE EVENT DATE: 20200424
